FAERS Safety Report 12949643 (Version 1)
Quarter: 2016Q4

REPORT INFORMATION
  Report Type: Spontaneous
  Country: US (occurrence: US)
  Receive Date: 20161117
  Receipt Date: 20161117
  Transmission Date: 20170207
  Serious: No
  Sender: FDA-Public Use
  Company Number: US-WATSON-2016-00462

PATIENT
  Sex: Male
  Weight: 99.8 kg

DRUGS (1)
  1. RANITIDINE HYDROCHLORIDE (WATSON LABORATORIES) [Suspect]
     Active Substance: RANITIDINE HYDROCHLORIDE
     Indication: GASTROOESOPHAGEAL REFLUX DISEASE
     Dosage: 150 MG, BID/PRN
     Route: 048

REACTIONS (1)
  - Drug ineffective [Unknown]
